FAERS Safety Report 7117914-4 (Version None)
Quarter: 2010Q4

REPORT INFORMATION
  Report Type: 
  Country: None (occurrence: None)
  Receive Date: 20101118
  Receipt Date: 20101118
  Transmission Date: 20110411
  Serious: Yes (Hospitalization)
  Sender: FDA-Public Use
  Company Number: None

PATIENT
  Sex: Male
  Weight: 129 kg

DRUGS (1)
  1. SARGRAMOSTIM 500 MCG GENZYME [Suspect]
     Indication: BONE MARROW FAILURE
     Dosage: 500 MCG DAILY SQ
     Route: 058
     Dates: start: 20101104, end: 20101104

REACTIONS (4)
  - DYSPNOEA [None]
  - HYPERHIDROSIS [None]
  - HYPOTENSION [None]
  - LOSS OF CONSCIOUSNESS [None]
